FAERS Safety Report 5299923-3 (Version None)
Quarter: 2007Q2

REPORT INFORMATION
  Report Type: 
  Country: None (occurrence: None)
  Receive Date: 20070410
  Receipt Date: 20070327
  Transmission Date: 20071010
  Serious: Yes (Hospitalization)
  Sender: FDA-Public Use
  Company Number: B0460746A

PATIENT
  Age: 50 Year
  Sex: Female
  Weight: 65.3633 kg

DRUGS (7)
  1. GW679769 (FORMULATION UNKNOWN) (GW679769) [Suspect]
     Indication: PROPHYLAXIS OF NAUSEA AND VOMITING
     Dosage: 150 MG CYCLIC ORAL
     Route: 048
     Dates: start: 20070105, end: 20070221
  2. ZOFRAN [Suspect]
     Indication: PROPHYLAXIS OF NAUSEA AND VOMITING
     Dosage: 8 MG CYCLIC ORAL
     Route: 048
     Dates: start: 20070105, end: 20070221
  3. DEXAMETHASONE [Suspect]
     Indication: PROPHYLAXIS OF NAUSEA AND VOMITING
     Dosage: 8 MG CYCLIC INTRAVENOUS
     Route: 042
     Dates: start: 20070105, end: 20070221
  4. FERROUS SULFATE [Concomitant]
  5. FLUOROURACIL [Concomitant]
  6. DOXORUBICIN HCL [Concomitant]
  7. CYCLOPHOSHAMIDE [Concomitant]

REACTIONS (19)
  - ABDOMINAL PAIN [None]
  - ADNEXA UTERI MASS [None]
  - ALANINE AMINOTRANSFERASE INCREASED [None]
  - BILIRUBIN CONJUGATED INCREASED [None]
  - BLOOD BILIRUBIN INCREASED [None]
  - BLOOD GLUCOSE INCREASED [None]
  - BLOOD UREA INCREASED [None]
  - CALCINOSIS [None]
  - DYSURIA [None]
  - FEBRILE NEUTROPENIA [None]
  - GASTROINTESTINAL OBSTRUCTION [None]
  - HAEMATOCRIT DECREASED [None]
  - HAEMOGLOBIN DECREASED [None]
  - NAUSEA [None]
  - NEPHROLITHIASIS [None]
  - TERATOMA [None]
  - VOMITING [None]
  - WHITE BLOOD CELL COUNT DECREASED [None]
  - WHITE BLOOD CELL COUNT INCREASED [None]
